FAERS Safety Report 6465184-2 (Version None)
Quarter: 2009Q4

REPORT INFORMATION
  Report Type: 
  Country: None (occurrence: None)
  Receive Date: 20091124
  Receipt Date: 20091111
  Transmission Date: 20100525
  Serious: Yes (Hospitalization)
  Sender: FDA-Public Use
  Company Number: ADR 50792009/PV2009-1939

PATIENT
  Age: 85 Year
  Sex: Female

DRUGS (4)
  1. SIMVASTATIN (ARROW) [Suspect]
     Indication: PARKINSONISM
     Dosage: 20 MG ORAL
     Route: 048
  2. FLUINDIONE (PREVISCAN?) [Concomitant]
  3. MICONAZOLE  (LORAMYC?) [Concomitant]
  4. LYSINE ACETYLSALICYLATE (KARDEGIC?) [Concomitant]

REACTIONS (5)
  - DEEP VEIN THROMBOSIS [None]
  - DIZZINESS [None]
  - DRUG DISPENSING ERROR [None]
  - HYPOPROTHROMBINAEMIA [None]
  - ORAL CANDIDIASIS [None]
